FAERS Safety Report 10311560 (Version 2)
Quarter: 2014Q3

REPORT INFORMATION
  Report Type: Report from Study
  Country: US (occurrence: US)
  Receive Date: 20140717
  Receipt Date: 20140725
  Transmission Date: 20150326
  Serious: Yes (Life-Threatening, Hospitalization)
  Sender: FDA-Public Use
  Company Number: US-GLAXOSMITHKLINE-A1081443A

PATIENT
  Age: 9 Year
  Sex: Male
  Weight: 31 kg

DRUGS (12)
  1. NELARABINE [Suspect]
     Active Substance: NELARABINE
     Indication: T-CELL TYPE ACUTE LEUKAEMIA
     Dates: start: 20130520
  2. MERCAPTOPURINE. [Suspect]
     Active Substance: MERCAPTOPURINE
     Indication: T-CELL TYPE ACUTE LEUKAEMIA
     Route: 048
     Dates: end: 20130826
  3. PEG/L-ASPARAGINASE [Suspect]
     Active Substance: PEGASPARGASE
     Indication: T-CELL TYPE ACUTE LEUKAEMIA
     Route: 030
     Dates: end: 20131216
  4. CYTARABINE. [Suspect]
     Active Substance: CYTARABINE
     Indication: T-CELL TYPE ACUTE LEUKAEMIA
     Dosage: 75MGM2 CYCLIC
     Dates: end: 20130823
  5. CYCLOPHOSPHAMIDE. [Suspect]
     Active Substance: CYCLOPHOSPHAMIDE
     Indication: T-CELL TYPE ACUTE LEUKAEMIA
     Route: 042
     Dates: end: 20130822
  6. DOXORUBICIN HYDROCHLORIDE. [Suspect]
     Active Substance: DOXORUBICIN HYDROCHLORIDE
     Indication: T-CELL TYPE ACUTE LEUKAEMIA
     Dates: end: 20131216
  7. PREDNISONE. [Suspect]
     Active Substance: PREDNISONE
     Indication: T-CELL TYPE ACUTE LEUKAEMIA
     Dates: end: 20130617
  8. VINCRISTINE SULFATE. [Suspect]
     Active Substance: VINCRISTINE SULFATE
     Indication: T-CELL TYPE ACUTE LEUKAEMIA
     Route: 042
     Dates: end: 20131226
  9. RADIATION [Concomitant]
     Active Substance: RADIATION THERAPY
  10. DAUNORUBICIN [Suspect]
     Active Substance: DAUNORUBICIN
     Indication: T-CELL TYPE ACUTE LEUKAEMIA
     Dates: end: 20130611
  11. DEXAMETHASONE. [Suspect]
     Active Substance: DEXAMETHASONE
     Indication: T-CELL TYPE ACUTE LEUKAEMIA
     Dates: end: 20140114
  12. METHOTREXATE [Suspect]
     Active Substance: METHOTREXATE
     Indication: T-CELL TYPE ACUTE LEUKAEMIA
     Route: 037
     Dates: end: 20131211

REACTIONS (1)
  - Histiocytosis haematophagic [Not Recovered/Not Resolved]

NARRATIVE: CASE EVENT DATE: 20140625
